FAERS Safety Report 23969689 (Version 1)
Quarter: 2024Q2

REPORT INFORMATION
  Report Type: Spontaneous
  Country: US (occurrence: US)
  Receive Date: 20240613
  Receipt Date: 20240613
  Transmission Date: 20240715
  Serious: Yes (Other)
  Sender: FDA-Public Use
  Company Number: US-STRIDES ARCOLAB LIMITED-2023SP017857

PATIENT
  Sex: Male

DRUGS (2)
  1. CINACALCET [Suspect]
     Active Substance: CINACALCET
     Indication: Hypercalcaemia
     Dosage: UNK
     Route: 048
  2. CINACALCET [Suspect]
     Active Substance: CINACALCET
     Dosage: UNK (DOSE GRADUALLY DECREASED)
     Route: 048

REACTIONS (1)
  - Hypocalcaemia [Unknown]
